FAERS Safety Report 6547244-0 (Version None)
Quarter: 2009Q4

REPORT INFORMATION
  Report Type: 
  Country: None (occurrence: None)
  Receive Date: 20091215
  Receipt Date: 20090909
  Transmission Date: 20100525
  Serious: Yes (Hospitalization, Other)
  Sender: FDA-Public Use
  Company Number: FEI2009-1889

PATIENT
  Age: 41 Year
  Sex: Female
  Weight: 74.3899 kg

DRUGS (2)
  1. PARAGARD T 380A [Suspect]
     Indication: CONTRACEPTION
     Dosage: INTRA-UTERINE
     Route: 015
     Dates: start: 19980101, end: 20090909
  2. IRON (IRON) (TABLETS) [Concomitant]

REACTIONS (4)
  - ABDOMINAL PAIN LOWER [None]
  - ANAEMIA [None]
  - BLOOD URINE PRESENT [None]
  - MEDICAL DEVICE COMPLICATION [None]
